FAERS Safety Report 14527348 (Version 12)
Quarter: 2019Q1

REPORT INFORMATION
  Report Type: Spontaneous
  Country: FR (occurrence: FR)
  Receive Date: 20180213
  Receipt Date: 20190102
  Transmission Date: 20190417
  Serious: Yes (Death, Hospitalization, Other)
  Sender: FDA-Public Use
  Company Number: FR-MYLANLABS-2018M1009619

PATIENT
  Age: 71 Year
  Sex: Male
  Weight: 113.4 kg

DRUGS (39)
  1. TRAMADOL. [Suspect]
     Active Substance: TRAMADOL
     Dosage: 4, QD, UNK,QID
     Route: 048
     Dates: start: 20161201, end: 20170119
  2. RACECADOTRIL [Suspect]
     Active Substance: RACECADOTRIL
     Indication: PRODUCT USED FOR UNKNOWN INDICATION
     Dosage: 100 MG, TID(300 MG QD)
     Route: 048
     Dates: start: 20161209, end: 20170119
  3. RACECADOTRIL [Suspect]
     Active Substance: RACECADOTRIL
     Dosage: 3 DOSAGE FORM, QD
     Route: 048
     Dates: start: 20161209, end: 20170119
  4. ULTRAVIST [Suspect]
     Active Substance: IOPROMIDE
     Indication: CHEST SCAN
     Dosage: 370 MG, UNK
     Route: 042
     Dates: start: 20170116, end: 20170116
  5. ULTRAVIST [Suspect]
     Active Substance: IOPROMIDE
     Dosage: UNK
     Route: 042
  6. CUBICIN [Suspect]
     Active Substance: DAPTOMYCIN
     Dosage: 800 MG, QD
     Route: 042
  7. SIMBICORT TURBUHALER [Suspect]
     Active Substance: BUDESONIDE\FORMOTEROL FUMARATE
     Indication: PRODUCT USED FOR UNKNOWN INDICATION
     Dosage: 1 DF, QD
     Route: 055
     Dates: start: 20161220, end: 20170119
  8. LOPERAMIDE ARROW [Concomitant]
     Active Substance: LOPERAMIDE
     Indication: PRODUCT USED FOR UNKNOWN INDICATION
     Dosage: UNK
     Route: 065
  9. DIFFU-K [Concomitant]
     Active Substance: POTASSIUM CHLORIDE
     Indication: PRODUCT USED FOR UNKNOWN INDICATION
     Dosage: UNK
     Route: 065
  10. POLARAMINE [Concomitant]
     Active Substance: DEXCHLORPHENIRAMINE MALEATE
     Indication: PRODUCT USED FOR UNKNOWN INDICATION
     Dosage: UNK
     Route: 065
  11. PARACETAMOL/TRAMADOL [Suspect]
     Active Substance: ACETAMINOPHEN\TRAMADOL
     Indication: PRODUCT USED FOR UNKNOWN INDICATION
     Dosage: 8 DF, QD
     Route: 048
     Dates: start: 20161201, end: 20170119
  12. LINEZOLID. [Suspect]
     Active Substance: LINEZOLID
     Indication: SKIN INFECTION
     Dosage: 600 MG, BID(1200 MG QD)
     Route: 048
     Dates: start: 20161222, end: 20170110
  13. PIPERACILLIN/TAZOBACTAM [Suspect]
     Active Substance: PIPERACILLIN SODIUM\TAZOBACTAM SODIUM
     Indication: SKIN INFECTION
     Dosage: 3 DF, TID
     Route: 042
     Dates: start: 20161204, end: 20170130
  14. NEFOPAM [Suspect]
     Active Substance: NEFOPAM
     Indication: PRODUCT USED FOR UNKNOWN INDICATION
     Dosage: UNK
     Route: 042
     Dates: start: 20161202, end: 20170119
  15. VANCOMYCIN [Suspect]
     Active Substance: VANCOMYCIN
     Indication: PRODUCT USED FOR UNKNOWN INDICATION
     Dosage: UNK
     Route: 065
  16. PANTOPRAZOLE [Suspect]
     Active Substance: PANTOPRAZOLE
     Indication: PRODUCT USED FOR UNKNOWN INDICATION
     Dosage: UNK
     Route: 042
     Dates: start: 20161225, end: 20170119
  17. DUPHALAC                           /01526201/ [Concomitant]
     Indication: PRODUCT USED FOR UNKNOWN INDICATION
     Dosage: UNK
     Route: 065
  18. FUROSEMIDE. [Concomitant]
     Active Substance: FUROSEMIDE
     Indication: PRODUCT USED FOR UNKNOWN INDICATION
     Dosage: UNK
     Route: 065
  19. METOCLOPRAMIDE. [Suspect]
     Active Substance: METOCLOPRAMIDE
     Indication: PRODUCT USED FOR UNKNOWN INDICATION
     Dosage: 30 MG, QD
     Route: 048
  20. PRIMPERAN [Suspect]
     Active Substance: METOCLOPRAMIDE HYDROCHLORIDE
     Dosage: 9 DOSAGE FORM, QD
     Route: 048
     Dates: start: 20161224, end: 20170119
  21. CUBICIN [Suspect]
     Active Substance: DAPTOMYCIN
     Indication: PRODUCT USED FOR UNKNOWN INDICATION
     Dosage: 800 MG, QD
     Route: 042
     Dates: start: 20170110, end: 20170201
  22. RIFADIN [Suspect]
     Active Substance: RIFAMPIN
     Indication: PRODUCT USED FOR UNKNOWN INDICATION
     Dosage: UNK
     Route: 065
  23. LOPRAM                             /00582602/ [Concomitant]
     Indication: PRODUCT USED FOR UNKNOWN INDICATION
     Dosage: UNK
     Route: 065
  24. VANCOMYCIN [Suspect]
     Active Substance: VANCOMYCIN
     Indication: PRODUCT USED FOR UNKNOWN INDICATION
     Dosage: UNK
     Route: 065
  25. TRAMADOL. [Suspect]
     Active Substance: TRAMADOL
     Indication: PRODUCT USED FOR UNKNOWN INDICATION
     Dosage: 8 DF, QD
     Route: 048
     Dates: start: 20161201, end: 20170119
  26. ZOLEDRONIC ACID [Suspect]
     Active Substance: ZOLEDRONIC ACID
     Indication: PRODUCT USED FOR UNKNOWN INDICATION
     Dosage: 1 DF, TID
     Route: 042
     Dates: start: 20161204, end: 20170130
  27. LANTUS [Concomitant]
     Active Substance: INSULIN GLARGINE
     Indication: PRODUCT USED FOR UNKNOWN INDICATION
     Dosage: UNK
     Route: 065
  28. LOVENOX [Concomitant]
     Active Substance: ENOXAPARIN SODIUM
     Indication: PRODUCT USED FOR UNKNOWN INDICATION
     Dosage: UNK
     Route: 065
     Dates: start: 20170114
  29. PIPERACILLIN/TAZOBACTAM [Suspect]
     Active Substance: PIPERACILLIN SODIUM\TAZOBACTAM SODIUM
     Dosage: 3 DF, QD (1 DF, 3X/DAY)
     Route: 042
     Dates: start: 20161204, end: 20170130
  30. PARACETAMOL [Suspect]
     Active Substance: ACETAMINOPHEN
     Indication: PRODUCT USED FOR UNKNOWN INDICATION
     Dosage: 8 DF, QD
     Route: 048
     Dates: start: 20161201, end: 20170119
  31. QUESTRAN [Suspect]
     Active Substance: CHOLESTYRAMINE
     Indication: PRODUCT USED FOR UNKNOWN INDICATION
     Dosage: 4 G, QD
     Route: 048
     Dates: start: 20161216, end: 20170119
  32. LINEZOLIDE ARROW [Suspect]
     Active Substance: LINEZOLID
     Indication: SKIN INFECTION
     Dosage: 600 MG, BID
     Dates: start: 20161222, end: 20170110
  33. RIFAMPICIN [Suspect]
     Active Substance: RIFAMPIN
     Indication: PRODUCT USED FOR UNKNOWN INDICATION
     Dosage: UNK
     Route: 065
  34. KARDEGIC [Concomitant]
     Active Substance: ASPIRIN DL-LYSINE
     Indication: PRODUCT USED FOR UNKNOWN INDICATION
     Dosage: UNK
     Route: 065
  35. UMULINE ZINC COMPOSE [Concomitant]
     Active Substance: INSULIN HUMAN
     Indication: PRODUCT USED FOR UNKNOWN INDICATION
     Dosage: UNK
     Route: 065
  36. LOPERAMIDE [Concomitant]
     Active Substance: LOPERAMIDE
     Indication: PRODUCT USED FOR UNKNOWN INDICATION
     Dosage: UNK
  37. PARACETAMOL/TRAMADOL [Suspect]
     Active Substance: ACETAMINOPHEN\TRAMADOL
     Dosage: 2 DF, QD
     Dates: start: 20161201, end: 20170119
  38. QUESTRAN [Suspect]
     Active Substance: CHOLESTYRAMINE
     Dosage: 1 DF, QD
     Route: 048
     Dates: start: 20161216, end: 20170119
  39. PRIMPERAN [Suspect]
     Active Substance: METOCLOPRAMIDE HYDROCHLORIDE
     Indication: PRODUCT USED FOR UNKNOWN INDICATION
     Dosage: 30 MG, QD (10 MG, TID (3 DF, TID (1 DF TID)))
     Route: 048
     Dates: start: 20161224, end: 20170119

REACTIONS (18)
  - Eosinophilic pneumonia [Fatal]
  - Glomerular filtration rate decreased [Fatal]
  - Alveolar lung disease [Fatal]
  - Diffuse alveolar damage [Fatal]
  - Thrombocytopenia [Fatal]
  - Death [Fatal]
  - Hyperammonaemia [Fatal]
  - Restlessness [Fatal]
  - Acute kidney injury [Fatal]
  - Dyspnoea [Fatal]
  - Hepatic encephalopathy [Fatal]
  - Eosinophilia [Fatal]
  - Generalised oedema [Fatal]
  - Sepsis [Fatal]
  - Pulmonary interstitial emphysema syndrome [Fatal]
  - Rash maculo-papular [Fatal]
  - Rectal haemorrhage [Fatal]
  - Eczema [Fatal]

NARRATIVE: CASE EVENT DATE: 20161227
